FAERS Safety Report 11437848 (Version 1)
Quarter: 2015Q3

REPORT INFORMATION
  Report Type: Spontaneous
  Country: DE (occurrence: CH)
  Receive Date: 20150831
  Receipt Date: 20150831
  Transmission Date: 20151125
  Serious: Yes (Other)
  Sender: FDA-Public Use
  Company Number: DE-REGENERON PHARMACEUTICALS, INC.-1304-482

PATIENT

DRUGS (1)
  1. EYLEA [Suspect]
     Active Substance: AFLIBERCEPT
     Indication: NEOVASCULAR AGE-RELATED MACULAR DEGENERATION
     Dosage: 0.05 ML MILLILITRE(S), SINGLE
     Route: 065
     Dates: start: 20130405, end: 20130405

REACTIONS (3)
  - Retinitis [Not Recovered/Not Resolved]
  - Vitritis [Not Recovered/Not Resolved]
  - Pseudoendophthalmitis [Not Recovered/Not Resolved]

NARRATIVE: CASE EVENT DATE: 20130405
